FAERS Safety Report 6155055-3 (Version None)
Quarter: 2009Q2

REPORT INFORMATION
  Report Type: 
  Country: None (occurrence: None)
  Receive Date: 20090410
  Receipt Date: 20090401
  Transmission Date: 20091009
  Serious: Yes (Other)
  Sender: FDA-Public Use
  Company Number: GXKR2009GB04170

PATIENT
  Age: 47 Year
  Weight: 60 kg

DRUGS (1)
  1. RAMIPRIL [Suspect]
     Indication: HYPERTENSION
     Dosage: 5 MG, ORAL
     Route: 048
     Dates: start: 20090308, end: 20090309

REACTIONS (3)
  - DRY MOUTH [None]
  - NAUSEA [None]
  - SWOLLEN TONGUE [None]
